FAERS Safety Report 20771410 (Version 2)
Quarter: 2022Q3

REPORT INFORMATION
  Report Type: Spontaneous
  Country: US (occurrence: US)
  Receive Date: 20220429
  Receipt Date: 20220726
  Transmission Date: 20221027
  Serious: No
  Sender: FDA-Public Use
  Company Number: US-BAUSCH-BL-2022-010091

PATIENT
  Sex: Female

DRUGS (1)
  1. ALAWAY PRESERVATIVE FREE [Suspect]
     Active Substance: KETOTIFEN FUMARATE
     Indication: Product used for unknown indication
     Route: 047
     Dates: start: 20220421

REACTIONS (2)
  - Swelling of eyelid [Unknown]
  - Throat irritation [Unknown]

NARRATIVE: CASE EVENT DATE: 20220422
